FAERS Safety Report 4642478-4 (Version None)
Quarter: 2005Q2

REPORT INFORMATION
  Report Type: 
  Country: None (occurrence: None)
  Receive Date: 20050422
  Receipt Date: 20040720
  Transmission Date: 20051028
  Serious: Yes (Hospitalization, Disabling, Other)
  Sender: FDA-Public Use
  Company Number: US-MERCK-0407USA01752

PATIENT
  Age: 43 Year
  Sex: Male
  Weight: 95 kg

DRUGS (2)
  1. VIOXX [Suspect]
     Indication: ARTHRITIS
     Route: 048
     Dates: start: 19991013, end: 19991202
  2. TENORMIN [Concomitant]
     Route: 065

REACTIONS (43)
  - ABDOMINAL PAIN [None]
  - ACUTE MYOCARDIAL INFARCTION [None]
  - ANAL INFLAMMATION [None]
  - ANXIETY DISORDER [None]
  - BACK INJURY [None]
  - BACK PAIN [None]
  - BLOOD ALKALINE PHOSPHATASE INCREASED [None]
  - BLOOD AMYLASE DECREASED [None]
  - BLOOD PRESSURE INCREASED [None]
  - BLOOD TRIGLYCERIDES INCREASED [None]
  - CEREBROVASCULAR ACCIDENT [None]
  - CERVICAL SPASM [None]
  - CHEST PAIN [None]
  - COLONIC POLYP [None]
  - CONSTIPATION [None]
  - CONVULSION [None]
  - COORDINATION ABNORMAL [None]
  - CORONARY ARTERY OCCLUSION [None]
  - DEPRESSION [None]
  - DERMATITIS [None]
  - HAEMATOCHEZIA [None]
  - HAEMORRHOIDAL HAEMORRHAGE [None]
  - HAEMORRHOIDS [None]
  - HYPERCHOLESTEROLAEMIA [None]
  - HYPERLIPIDAEMIA [None]
  - HYPERTENSION [None]
  - MEMORY IMPAIRMENT [None]
  - MENTAL STATUS CHANGES [None]
  - MUSCLE SPASMS [None]
  - NASAL CYST [None]
  - NASAL MUCOSAL DISORDER [None]
  - OBESITY [None]
  - OEDEMA PERIPHERAL [None]
  - PARAESTHESIA [None]
  - PHARYNGITIS [None]
  - RHINITIS [None]
  - SENSORY DISTURBANCE [None]
  - SINUS POLYP [None]
  - SLEEP APNOEA SYNDROME [None]
  - STOMACH DISCOMFORT [None]
  - STRESS [None]
  - UPPER RESPIRATORY TRACT INFECTION [None]
  - VENTRICULAR TACHYCARDIA [None]
